FAERS Safety Report 11099747 (Version 1)
Quarter: 2015Q2

REPORT INFORMATION
  Report Type: Spontaneous
  Country: US (occurrence: US)
  Receive Date: 20150508
  Receipt Date: 20150508
  Transmission Date: 20150821
  Serious: Yes (Other)
  Sender: FDA-Public Use
  Company Number: US-TEVA-559939USA

PATIENT
  Age: 60 Year
  Sex: Female
  Weight: 76.27 kg

DRUGS (4)
  1. VENLAFAXINE [Suspect]
     Active Substance: VENLAFAXINE HYDROCHLORIDE
     Indication: DEPRESSION
  2. EFFEXOR XR [Suspect]
     Active Substance: VENLAFAXINE HYDROCHLORIDE
     Indication: DEPRESSION
  3. VENLAFAXINE [Suspect]
     Active Substance: VENLAFAXINE HYDROCHLORIDE
     Indication: ANXIETY
     Dosage: 37.5 MILLIGRAM DAILY; EVERY MORNING
     Route: 065
     Dates: start: 2015, end: 2015
  4. EFFEXOR XR [Suspect]
     Active Substance: VENLAFAXINE HYDROCHLORIDE
     Indication: ANXIETY
     Dosage: 37.5 MILLIGRAM DAILY; EVERY MORNING

REACTIONS (8)
  - Malaise [Unknown]
  - Tremor [Unknown]
  - Hypophagia [Recovered/Resolved]
  - Intentional product use issue [Unknown]
  - Feeling abnormal [Unknown]
  - Drug dependence [Unknown]
  - Impaired gastric emptying [Recovered/Resolved]
  - Panic attack [Recovered/Resolved]

NARRATIVE: CASE EVENT DATE: 2015
